FAERS Safety Report 17178984 (Version 1)
Quarter: 2019Q4

REPORT INFORMATION
  Report Type: Spontaneous
  Country: CA (occurrence: CA)
  Receive Date: 20191219
  Receipt Date: 20191219
  Transmission Date: 20200122
  Serious: Yes (Hospitalization)
  Sender: FDA-Public Use
  Company Number: NVSC2019CA070843

PATIENT

DRUGS (1)
  1. METHYLPHENIDATE HYDROCHLORIDE. [Suspect]
     Active Substance: METHYLPHENIDATE HYDROCHLORIDE
     Indication: PRODUCT USED FOR UNKNOWN INDICATION
     Route: 065

REACTIONS (15)
  - Dyspepsia [Unknown]
  - Muscle twitching [Unknown]
  - Spermatozoa abnormal [Unknown]
  - Peripheral vascular disorder [Unknown]
  - Lactose intolerance [Unknown]
  - Nystagmus [Unknown]
  - Dumping syndrome [Unknown]
  - Vertigo [Unknown]
  - Somnolence [Unknown]
  - Urinary incontinence [Unknown]
  - Gluten sensitivity [Unknown]
  - Abdominal pain upper [Unknown]
  - Heart rate increased [Unknown]
  - Weight decreased [Unknown]
  - Fatigue [Unknown]
